FAERS Safety Report 9546502 (Version 1)
Quarter: 2013Q3

REPORT INFORMATION
  Report Type: Spontaneous
  Country: US (occurrence: US)
  Receive Date: 20130923
  Receipt Date: 20130923
  Transmission Date: 20140515
  Serious: No
  Sender: FDA-Public Use
  Company Number: US-ALLERGAN-1202434US

PATIENT
  Age: 77 Year
  Sex: Female

DRUGS (1)
  1. ACULAR LS [Suspect]
     Indication: POSTOPERATIVE CARE
     Dosage: UNK

REACTIONS (2)
  - Swollen tongue [Recovered/Resolved]
  - Parotid gland enlargement [Recovered/Resolved]
